FAERS Safety Report 12522219 (Version 1)
Quarter: 2016Q3

REPORT INFORMATION
  Report Type: Spontaneous
  Country: US (occurrence: US)
  Receive Date: 20160701
  Receipt Date: 20160701
  Transmission Date: 20161109
  Serious: Yes (Other)
  Sender: FDA-Public Use
  Company Number: US-BRISTOL-MYERS SQUIBB COMPANY-BMS-2016-052837

PATIENT
  Sex: Female
  Weight: 61.2 kg

DRUGS (1)
  1. OPDIVO [Suspect]
     Active Substance: NIVOLUMAB
     Indication: NON-SMALL CELL LUNG CANCER
     Dosage: UNK
     Route: 065
     Dates: start: 201503

REACTIONS (8)
  - Pneumonia [Unknown]
  - Fatigue [Unknown]
  - Hypersomnia [Unknown]
  - Night sweats [Unknown]
  - Decreased appetite [Unknown]
  - Nausea [Unknown]
  - Chills [Unknown]
  - Eructation [Unknown]
